FAERS Safety Report 5204595-X (Version None)
Quarter: 2007Q1

REPORT INFORMATION
  Report Type: 
  Country: None (occurrence: None)
  Receive Date: 20070110
  Receipt Date: 20060519
  Transmission Date: 20070707
  Serious: No
  Sender: FDA-Public Use
  Company Number: US-BRISTOL-MYERS SQUIBB COMPANY-13383393

PATIENT
  Age: 47 Year
  Sex: Female
  Weight: 68 kg

DRUGS (3)
  1. ABILIFY [Suspect]
     Indication: BIPOLAR DISORDER
     Route: 048
     Dates: start: 20060518, end: 20060518
  2. LORATADINE [Concomitant]
  3. OXYMETAZOLINE HCL [Concomitant]
     Route: 045

REACTIONS (7)
  - DIZZINESS [None]
  - EYELID FUNCTION DISORDER [None]
  - GAIT DISTURBANCE [None]
  - HEADACHE [None]
  - INSOMNIA [None]
  - NAUSEA [None]
  - SINUS DISORDER [None]
